FAERS Safety Report 12945703 (Version 1)
Quarter: 2016Q4

REPORT INFORMATION
  Report Type: Spontaneous
  Country: AE (occurrence: AE)
  Receive Date: 20161115
  Receipt Date: 20161115
  Transmission Date: 20170207
  Serious: Yes (Other)
  Sender: FDA-Public Use
  Company Number: AE-MYLANLABS-2016M1049281

PATIENT

DRUGS (1)
  1. FONDAPARINUX [Suspect]
     Active Substance: FONDAPARINUX
     Indication: THROMBOSIS PROPHYLAXIS
     Dosage: 2.5 MG, QD
     Dates: start: 20161025, end: 20161025

REACTIONS (1)
  - Heparin-induced thrombocytopenia [Unknown]

NARRATIVE: CASE EVENT DATE: 20161026
